FAERS Safety Report 23354458 (Version 4)
Quarter: 2024Q3

REPORT INFORMATION
  Report Type: Report from Study
  Country: CO (occurrence: CO)
  Receive Date: 20240101
  Receipt Date: 20240808
  Transmission Date: 20241016
  Serious: Yes (Hospitalization, Other)
  Sender: ROCHE
  Company Number: CO-002147023-NVSC2020CO198534

PATIENT
  Age: 10 Year
  Sex: Female
  Weight: 34 kg

DRUGS (10)
  1. XOLAIR [Suspect]
     Active Substance: OMALIZUMAB
     Indication: Asthma
     Route: 058
     Dates: start: 201909, end: 202003
  2. XOLAIR [Suspect]
     Active Substance: OMALIZUMAB
     Route: 058
     Dates: start: 20200820
  3. XOLAIR [Suspect]
     Active Substance: OMALIZUMAB
     Dosage: 300 MG, QMO
     Route: 058
     Dates: start: 20190915
  4. XOLAIR [Suspect]
     Active Substance: OMALIZUMAB
     Dosage: 300 MG, QMO
     Route: 058
  5. XOLAIR [Suspect]
     Active Substance: OMALIZUMAB
     Route: 058
  6. XOLAIR [Suspect]
     Active Substance: OMALIZUMAB
     Route: 058
     Dates: start: 20240402
  7. OLOPATADINE [Suspect]
     Active Substance: OLOPATADINE
     Indication: Eye allergy
     Dosage: 1 DOSAGE FORM, QD
     Route: 065
  8. BUDESONIDE [Concomitant]
     Active Substance: BUDESONIDE
     Indication: Asthma
     Dosage: 2 DOSAGE FORM, Q12H (2 PUFF)
  9. FLUTICASONE FUROATE [Concomitant]
     Active Substance: FLUTICASONE FUROATE
     Indication: Asthma
     Dosage: UNK
  10. FLUTICASONE FUROATE [Concomitant]
     Active Substance: FLUTICASONE FUROATE
     Indication: Rhinitis allergic
     Dosage: 1 DOSAGE FORM, QD (1 PUFF)

REACTIONS (23)
  - Headache [Not Recovered/Not Resolved]
  - Vomiting [Unknown]
  - Choking [Unknown]
  - Eye irritation [Recovered/Resolved]
  - Eye inflammation [Recovered/Resolved]
  - Nasal congestion [Recovered/Resolved]
  - COVID-19 [Unknown]
  - Pharyngeal inflammation [Unknown]
  - Immune system disorder [Unknown]
  - Influenza [Unknown]
  - Cough [Unknown]
  - Hypersensitivity [Unknown]
  - Eye allergy [Not Recovered/Not Resolved]
  - Mite allergy [Not Recovered/Not Resolved]
  - Sneezing [Unknown]
  - Constipation [Unknown]
  - Inappropriate schedule of product administration [Unknown]
  - Asthmatic crisis [Recovering/Resolving]
  - Illness [Recovering/Resolving]
  - Eye discharge [Recovering/Resolving]
  - Migraine [Not Recovered/Not Resolved]
  - Malaise [Unknown]
  - Eye pain [Unknown]

NARRATIVE: CASE EVENT DATE: 20190901
